FAERS Safety Report 15424302 (Version 1)
Quarter: 2018Q4

REPORT INFORMATION
  Report Type: Spontaneous
  Country: US (occurrence: US)
  Receive Date: 20180925
  Receipt Date: 20180925
  Transmission Date: 20190204
  Serious: No
  Sender: FDA-Public Use
  Company Number: US-SA-2018SA265312

PATIENT
  Age: 55 Year
  Sex: Female

DRUGS (4)
  1. ACTHAR [Suspect]
     Active Substance: CORTICOTROPIN
     Indication: MOBILITY DECREASED
  2. LEMTRADA [Suspect]
     Active Substance: ALEMTUZUMAB
     Indication: MULTIPLE SCLEROSIS
     Dosage: UNK UNK, UNK
     Route: 041
     Dates: start: 201710, end: 2017
  3. ACTHAR [Suspect]
     Active Substance: CORTICOTROPIN
     Indication: WALKING DISABILITY
  4. ACTHAR [Suspect]
     Active Substance: CORTICOTROPIN
     Indication: PAIN IN EXTREMITY
     Dosage: UNK UNK, UNK
     Route: 065

REACTIONS (4)
  - Condition aggravated [Unknown]
  - Mobility decreased [Unknown]
  - Gait disturbance [Unknown]
  - Pain in extremity [Unknown]
